FAERS Safety Report 25070174 (Version 1)
Quarter: 2025Q1

REPORT INFORMATION
  Report Type: Report from Study
  Country: US (occurrence: US)
  Receive Date: 20250312
  Receipt Date: 20250312
  Transmission Date: 20250408
  Serious: Yes (Other)
  Sender: ABBVIE
  Company Number: US-ABBVIE-6165872

PATIENT
  Sex: Female

DRUGS (1)
  1. HUMIRA [Suspect]
     Active Substance: ADALIMUMAB
     Indication: Hidradenitis
     Dosage: FORM STRENGTH 40 MG/ML, CITRATE FREE
     Route: 058
     Dates: start: 2023

REACTIONS (5)
  - Blindness [Unknown]
  - Dementia Alzheimer^s type [Unknown]
  - Aphasia [Unknown]
  - Gait inability [Unknown]
  - Bedridden [Unknown]
